FAERS Safety Report 7347452-5 (Version None)
Quarter: 2011Q1

REPORT INFORMATION
  Report Type: 
  Country: None (occurrence: None)
  Receive Date: 20110311
  Receipt Date: 20110304
  Transmission Date: 20110831
  Serious: Yes (Life-Threatening, Hospitalization)
  Sender: FDA-Public Use
  Company Number: PHHO2011FR04212

PATIENT
  Sex: Male

DRUGS (5)
  1. STI571/CGP57148B [Suspect]
     Indication: ACUTE LYMPHOCYTIC LEUKAEMIA
  2. TACROLIMUS [Concomitant]
  3. BASILIXIMAB [Concomitant]
  4. CELLCEPT [Concomitant]
  5. CICLOSPORIN [Concomitant]

REACTIONS (17)
  - HAEMOLYSIS [None]
  - HYPOXIA [None]
  - GRAFT VERSUS HOST DISEASE [None]
  - MENTAL DISORDER [None]
  - ACUTE PULMONARY OEDEMA [None]
  - APLASIA [None]
  - CYTOMEGALOVIRUS INFECTION [None]
  - SKIN PLAQUE [None]
  - HAEMATURIA [None]
  - ASPERGILLOSIS [None]
  - RENAL FAILURE [None]
  - HAEMOLYTIC ANAEMIA [None]
  - DEHYDRATION [None]
  - MUSCLE SPASMS [None]
  - HYPOTENSION [None]
  - BONE MARROW TRANSPLANT [None]
  - THROMBOCYTOPENIA [None]
